FAERS Safety Report 7154714-3 (Version None)
Quarter: 2010Q4

REPORT INFORMATION
  Report Type: 
  Country: None (occurrence: None)
  Receive Date: 20101214
  Receipt Date: 20091106
  Transmission Date: 20110411
  Serious: No
  Sender: FDA-Public Use
  Company Number: US-AMGEN-TCS369357

PATIENT

DRUGS (4)
  1. ENBREL [Suspect]
     Indication: JUVENILE ARTHRITIS
     Dosage: 50 MG, QWK
     Route: 058
     Dates: start: 20041001
  2. IBUPROFEN [Concomitant]
  3. CALCIUM CARBONATE/VITAMIN D [Concomitant]
  4. DEXTROPROPOXYPHENE NAPSILATE W/ ACETAMINOPHEN [Concomitant]

REACTIONS (8)
  - ENDOMETRIOSIS [None]
  - JOINT INJURY [None]
  - JOINT RANGE OF MOTION DECREASED [None]
  - JUVENILE ARTHRITIS [None]
  - MUSCULOSKELETAL STIFFNESS [None]
  - NERVOUSNESS [None]
  - OSTEOPENIA [None]
  - URTICARIA [None]
